FAERS Safety Report 25412589 (Version 1)
Quarter: 2025Q2

REPORT INFORMATION
  Report Type: Spontaneous
  Country: US (occurrence: None)
  Receive Date: 20250607
  Receipt Date: 20250607
  Transmission Date: 20250717
  Serious: No
  Sender: FDA-CTU
  Company Number: None

PATIENT
  Age: 54 Year
  Sex: Female
  Weight: 63 kg

DRUGS (1)
  1. EVENITY [Suspect]
     Active Substance: ROMOSOZUMAB-AQQG
     Indication: Bone loss
     Dates: start: 20250604, end: 20250604

REACTIONS (3)
  - Injection site erythema [None]
  - Injection site swelling [None]
  - Injection site reaction [None]

NARRATIVE: CASE EVENT DATE: 20250604
